FAERS Safety Report 8158197-6 (Version None)
Quarter: 2012Q1

REPORT INFORMATION
  Report Type: 
  Country: None (occurrence: None)
  Receive Date: 20120222
  Receipt Date: 20120213
  Transmission Date: 20120608
  Serious: Yes (Other)
  Sender: FDA-Public Use
  Company Number: TN-BRISTOL-MYERS SQUIBB COMPANY-16399008

PATIENT
  Age: 45 Year
  Sex: Male

DRUGS (1)
  1. BARACLUDE [Suspect]
     Dates: start: 20120109

REACTIONS (1)
  - ACUTE LEUKAEMIA [None]
